FAERS Safety Report 24135880 (Version 1)
Quarter: 2024Q3

REPORT INFORMATION
  Report Type: Spontaneous
  Country: US (occurrence: US)
  Receive Date: 20240725
  Receipt Date: 20240725
  Transmission Date: 20241017
  Serious: No
  Sender: STRIDES
  Company Number: US-STRIDES ARCOLAB LIMITED-2024SP002736

PATIENT
  Age: 71 Year
  Sex: Female
  Weight: 58.957 kg

DRUGS (3)
  1. OSELTAMIVIR [Suspect]
     Active Substance: OSELTAMIVIR
     Indication: Influenza
     Dosage: 75 MILLIGRAM, (02 CAPSULES A DAY) TOTAL OF 10 CAPSULES
     Route: 048
     Dates: start: 20240222, end: 20240226
  2. IRBESARTAN [Concomitant]
     Active Substance: IRBESARTAN
     Indication: Blood pressure measurement
     Dosage: 150 MILLIGRAM, PER DAY, STARTED 20 YEARS AGO
     Route: 065
  3. ATORVASTATIN [Concomitant]
     Active Substance: ATORVASTATIN
     Indication: Blood cholesterol
     Dosage: 10 MILLIGRAM, PER DAY, STARTED  ONE AND HALF YEARS AGO
     Route: 065

REACTIONS (4)
  - Diplopia [Not Recovered/Not Resolved]
  - Binocular visual dysfunction [Unknown]
  - Dizziness [Unknown]
  - Eye movement disorder [Unknown]

NARRATIVE: CASE EVENT DATE: 20240228
